FAERS Safety Report 8246276-4 (Version None)
Quarter: 2012Q1

REPORT INFORMATION
  Report Type: 
  Country: None (occurrence: None)
  Receive Date: 20120329
  Receipt Date: 20120329
  Transmission Date: 20120608
  Serious: No
  Sender: FDA-Public Use
  Company Number: None

PATIENT
  Age: 46 Year
  Sex: Female

DRUGS (2)
  1. CHORIONIC GONADOTROPIN [Suspect]
  2. HOMOEPATHIC [Suspect]

REACTIONS (3)
  - THROMBOSIS [None]
  - HEADACHE [None]
  - MYOCARDIAL INFARCTION [None]
